FAERS Safety Report 19593797 (Version 1)
Quarter: 2021Q3

REPORT INFORMATION
  Report Type: Spontaneous
  Country: US (occurrence: US)
  Receive Date: 20210722
  Receipt Date: 20210722
  Transmission Date: 20211014
  Serious: Yes (Other)
  Sender: FDA-Public Use
  Company Number: US-BAYER-2021-175809

PATIENT
  Age: 38 Year
  Sex: Female

DRUGS (1)
  1. ACETYLSALICYLIC ACID [Suspect]
     Active Substance: ASPIRIN
     Indication: CHRONIC VILLITIS OF UNKNOWN ETIOLOGY

REACTIONS (5)
  - Premature delivery [None]
  - Pre-eclampsia [None]
  - Off label use [None]
  - Contraindicated product administered [None]
  - Caesarean section [None]
